FAERS Safety Report 8673317 (Version 6)
Quarter: 2012Q4

REPORT INFORMATION
  Report Type: 
  Country: CA (occurrence: CA)
  Receive Date: 20120719
  Receipt Date: 20121126
  Transmission Date: 20130627
  Serious: Yes (Other)
  Sender: FDA-Public Use
  Company Number: PHHY2012CA031867

PATIENT
  Sex: Female

DRUGS (2)
  1. GILENYA [Suspect]
     Indication: RELAPSING-REMITTING MULTIPLE SCLEROSIS
     Dosage: 0.5 mg, QD
     Route: 048
     Dates: start: 20111206
  2. DITROPAN [Concomitant]
     Dosage: 15 mg, UNK

REACTIONS (15)
  - Osteoarthritis [Unknown]
  - Arthralgia [Unknown]
  - Gait disturbance [Unknown]
  - Condition aggravated [Unknown]
  - Cyst [Not Recovered/Not Resolved]
  - Lower respiratory tract infection [Unknown]
  - Chest discomfort [Unknown]
  - Aphonia [Unknown]
  - Blood creatine phosphokinase increased [Unknown]
  - Musculoskeletal stiffness [Unknown]
  - Papule [Not Recovered/Not Resolved]
  - Balance disorder [Recovered/Resolved]
  - Oropharyngeal pain [Unknown]
  - Asthenia [Recovered/Resolved]
  - White blood cell count decreased [Unknown]
